FAERS Safety Report 8102155-4 (Version None)
Quarter: 2012Q1

REPORT INFORMATION
  Report Type: 
  Country: None (occurrence: None)
  Receive Date: 20120201
  Receipt Date: 20120124
  Transmission Date: 20120608
  Serious: Yes (Hospitalization)
  Sender: FDA-Public Use
  Company Number: US-BIOGENIDEC-2011BI041496

PATIENT
  Age: 53 Year
  Sex: Female
  Weight: 93 kg

DRUGS (35)
  1. LEVOTHYROXINE SODIUM [Concomitant]
     Indication: HYPOTHYROIDISM
     Route: 048
  2. POLYETHYLENE GLYCOL [Concomitant]
     Route: 048
  3. BETHANECHOL [Concomitant]
     Route: 048
  4. LOPERAMIDE HCL [Concomitant]
     Indication: DIARRHOEA
     Route: 048
  5. PROTONIX [Concomitant]
     Route: 048
  6. ARICEPT [Concomitant]
     Indication: AMNESIA
     Route: 048
  7. FLONASE [Concomitant]
     Route: 045
  8. TRIMETHOPRIM [Concomitant]
     Route: 048
  9. CEPACOL [Concomitant]
     Indication: THROAT IRRITATION
  10. NYSTATIN [Concomitant]
  11. PAXIL [Concomitant]
     Route: 048
  12. DEPAKOTE ER [Concomitant]
     Route: 048
  13. HALDOL [Concomitant]
     Route: 048
  14. COGENTIN [Concomitant]
     Route: 048
  15. COLACE [Concomitant]
     Route: 048
  16. SPIRONOLACTONE [Concomitant]
     Route: 048
  17. BENADRYL [Concomitant]
     Route: 048
  18. VICODIN [Concomitant]
     Route: 048
  19. VICODIN [Concomitant]
  20. TYSABRI [Suspect]
     Indication: MULTIPLE SCLEROSIS
     Route: 042
     Dates: start: 20080520
  21. ACIPHEX [Concomitant]
     Indication: GASTROOESOPHAGEAL REFLUX DISEASE
     Route: 048
  22. KLONOPIN [Concomitant]
     Route: 048
  23. ACETAMINOPHEN [Concomitant]
     Indication: PAIN
     Route: 048
  24. POTASSIUM [Concomitant]
     Route: 048
  25. NITROLINGUAL PUMPSPRAY [Concomitant]
  26. PROVENTIL [Concomitant]
     Route: 055
  27. GUAIFENESIN [Concomitant]
     Indication: COUGH
  28. PATADAY [Concomitant]
     Route: 047
  29. DULCOLAX [Concomitant]
     Indication: CONSTIPATION
     Route: 048
  30. LIDOCAINE VISCOUS SOLUTION [Concomitant]
  31. DEPAKOTE ER [Concomitant]
     Route: 048
  32. MELOXICAM [Concomitant]
     Route: 048
  33. SYMBICORT [Concomitant]
     Route: 048
  34. LACTASE [Concomitant]
     Route: 048
  35. ADVAIR DISKUS 100/50 [Concomitant]
     Route: 055

REACTIONS (2)
  - DEPRESSION [None]
  - MOOD SWINGS [None]
